FAERS Safety Report 4576826-0 (Version None)
Quarter: 2005Q1

REPORT INFORMATION
  Report Type: 
  Country: None (occurrence: None)
  Receive Date: 20050210
  Receipt Date: 20050207
  Transmission Date: 20050727
  Serious: Yes (Life-Threatening, Hospitalization)
  Sender: FDA-Public Use
  Company Number: PHRM2005FR00751

PATIENT
  Sex: Female

DRUGS (2)
  1. TANAKAN [Concomitant]
     Route: 048
  2. COTAREG [Suspect]
     Dosage: UNK, UNK
     Route: 048
     Dates: end: 20041117

REACTIONS (3)
  - ANAEMIA HAEMOLYTIC AUTOIMMUNE [None]
  - HAEMOGLOBIN DECREASED [None]
  - HAEMOLYTIC ANAEMIA [None]
